FAERS Safety Report 14031645 (Version 1)
Quarter: 2017Q4

REPORT INFORMATION
  Report Type: Spontaneous
  Country: ES (occurrence: ES)
  Receive Date: 20171002
  Receipt Date: 20171002
  Transmission Date: 20180321
  Serious: Yes (Other)
  Sender: FDA-Public Use
  Company Number: ES-MYLANLABS-2017M1061025

PATIENT
  Age: 4 Year
  Sex: Female

DRUGS (1)
  1. DEXMEDETOMIDINE. [Suspect]
     Active Substance: DEXMEDETOMIDINE
     Indication: AGITATION
     Dosage: 0.7 MCG/KG/HOUR
     Route: 050

REACTIONS (2)
  - Supraventricular tachycardia [Recovered/Resolved]
  - Withdrawal syndrome [Recovered/Resolved]
